FAERS Safety Report 8494099-3 (Version None)
Quarter: 2012Q2

REPORT INFORMATION
  Report Type: 
  Country: None (occurrence: None)
  Receive Date: 20120628
  Receipt Date: 20120615
  Transmission Date: 20120825
  Serious: Yes (Other)
  Sender: FDA-Public Use
  Company Number: ACO_22816_2010

PATIENT
  Age: 52 Year
  Sex: Female
  Weight: 47.6 kg

DRUGS (12)
  1. GILENYA [Concomitant]
  2. DETROL [Concomitant]
  3. BACLOFEN [Concomitant]
  4. IRON SUPPLEMENT (IRON) [Concomitant]
  5. AMPYRA [Suspect]
     Indication: MULTIPLE SCLEROSIS
     Dosage: EVERY 12 HOURS AT 10:30 AM AND 10:30 PM, ORAL 10 MG, BID, ORAL
     Route: 048
     Dates: start: 20100101
  6. AMPYRA [Suspect]
     Indication: GAIT DISTURBANCE
     Dosage: EVERY 12 HOURS AT 10:30 AM AND 10:30 PM, ORAL 10 MG, BID, ORAL
     Route: 048
     Dates: start: 20100101
  7. AMPYRA [Suspect]
     Indication: MULTIPLE SCLEROSIS
     Dosage: EVERY 12 HOURS AT 10:30 AM AND 10:30 PM, ORAL 10 MG, BID, ORAL
     Route: 048
     Dates: start: 20100423, end: 20100501
  8. AMPYRA [Suspect]
     Indication: GAIT DISTURBANCE
     Dosage: EVERY 12 HOURS AT 10:30 AM AND 10:30 PM, ORAL 10 MG, BID, ORAL
     Route: 048
     Dates: start: 20100423, end: 20100501
  9. AMPYRA [Suspect]
     Indication: MULTIPLE SCLEROSIS
     Dosage: EVERY 12 HOURS AT 10:30 AM AND 10:30 PM, ORAL 10 MG, BID, ORAL
     Route: 048
     Dates: start: 20120614
  10. AMPYRA [Suspect]
     Indication: GAIT DISTURBANCE
     Dosage: EVERY 12 HOURS AT 10:30 AM AND 10:30 PM, ORAL 10 MG, BID, ORAL
     Route: 048
     Dates: start: 20120614
  11. PREDNISONE TAB [Concomitant]
  12. REBIF [Concomitant]

REACTIONS (5)
  - BALANCE DISORDER [None]
  - GAIT DISTURBANCE [None]
  - PARAESTHESIA [None]
  - DYSSTASIA [None]
  - DRUG EFFECT DECREASED [None]
